FAERS Safety Report 15358543 (Version 1)
Quarter: 2018Q3

REPORT INFORMATION
  Report Type: Report from Study
  Country: BR (occurrence: BR)
  Receive Date: 20180906
  Receipt Date: 20180906
  Transmission Date: 20181010
  Serious: Yes (Hospitalization, Other)
  Sender: FDA-Public Use
  Company Number: PHHY2017BR167213

PATIENT
  Age: 54 Year
  Sex: Female
  Weight: 130 kg

DRUGS (11)
  1. DILTIAZEM. [Concomitant]
     Active Substance: DILTIAZEM
     Indication: PRODUCT USED FOR UNKNOWN INDICATION
     Dosage: 2 DF, QD
     Route: 048
  2. CARDIZEM [Concomitant]
     Active Substance: DILTIAZEM HYDROCHLORIDE
     Indication: ARRHYTHMIA
     Dosage: 90 MG, QD
     Route: 048
     Dates: start: 2009
  3. TENORETIC [Concomitant]
     Active Substance: ATENOLOL\CHLORTHALIDONE
     Indication: PRODUCT USED FOR UNKNOWN INDICATION
     Dosage: UNK
     Route: 048
     Dates: start: 2008
  4. COSENTYX [Suspect]
     Active Substance: SECUKINUMAB
     Indication: PSORIASIS
     Dosage: 300 MG, QMO
     Route: 058
     Dates: end: 201807
  5. CALCORT [Concomitant]
     Active Substance: DEFLAZACORT
     Indication: ERYTHEMA NODOSUM
     Dosage: 3 MG, QOD
     Route: 048
     Dates: start: 2010
  6. SINVASTACOR [Concomitant]
     Active Substance: SIMVASTATIN
     Indication: PRODUCT USED FOR UNKNOWN INDICATION
     Dosage: 20 MG, QD
     Route: 048
  7. ROSUVASTATIN. [Concomitant]
     Active Substance: ROSUVASTATIN
     Indication: BLOOD CHOLESTEROL INCREASED
     Dosage: 2 DF, QD
     Route: 065
     Dates: start: 2012
  8. VENALOT [Concomitant]
     Active Substance: COUMARIN\TROXERUTIN
     Indication: ERYTHEMA NODOSUM
     Dosage: 20 MG, QD
     Route: 048
  9. ATENOLOL. [Concomitant]
     Active Substance: ATENOLOL
     Indication: HYPERTENSION
  10. COSENTYX [Suspect]
     Active Substance: SECUKINUMAB
     Indication: PSORIATIC ARTHROPATHY
     Dosage: 300 MG, QW
     Route: 058
     Dates: start: 2017
  11. ATENOLOL. [Concomitant]
     Active Substance: ATENOLOL
     Indication: ARRHYTHMIA
     Dosage: 2 DF, QD
     Route: 065
     Dates: start: 2009

REACTIONS (17)
  - Malaise [Recovering/Resolving]
  - Pain in extremity [Recovering/Resolving]
  - Influenza [Recovered/Resolved]
  - Injection site pain [Unknown]
  - Drug effect incomplete [Unknown]
  - Skin lesion [Not Recovered/Not Resolved]
  - Cellulitis [Recovered/Resolved with Sequelae]
  - Feeling hot [Recovering/Resolving]
  - Abdominal pain [Unknown]
  - Arthralgia [Unknown]
  - Injection site discomfort [Recovered/Resolved]
  - Helicobacter infection [Unknown]
  - Diverticulitis [Recovered/Resolved with Sequelae]
  - Leukocytosis [Recovered/Resolved]
  - Injection site haemorrhage [Unknown]
  - Erythema [Recovering/Resolving]
  - Skin hyperpigmentation [Recovering/Resolving]

NARRATIVE: CASE EVENT DATE: 201807
